FAERS Safety Report 6781977-6 (Version None)
Quarter: 2010Q2

REPORT INFORMATION
  Report Type: 
  Country: None (occurrence: None)
  Receive Date: 20100615
  Receipt Date: 20100603
  Transmission Date: 20101027
  Serious: Yes (Hospitalization)
  Sender: FDA-Public Use
  Company Number: LEO-2010-00501

PATIENT
  Age: 50 Year
  Sex: Female
  Weight: 54 kg

DRUGS (1)
  1. INNOHEP [Suspect]
     Indication: PHLEBITIS
     Dosage: 14000 IU, SUBCUTAENOUS
     Route: 058
     Dates: start: 20100101

REACTIONS (3)
  - COAGULATION TIME PROLONGED [None]
  - HAEMATOMA [None]
  - OVERDOSE [None]
